FAERS Safety Report 5042697-1 (Version None)
Quarter: 2006Q2

REPORT INFORMATION
  Report Type: 
  Country: None (occurrence: None)
  Receive Date: 20060601
  Receipt Date: 20060225
  Transmission Date: 20061013
  Serious: No
  Sender: FDA-Public Use
  Company Number: 2006PV009290

PATIENT
  Age: 73 Year
  Sex: Female
  Weight: 43.9989 kg

DRUGS (6)
  1. BYETTA [Suspect]
     Indication: DIABETES MELLITUS NON-INSULIN-DEPENDENT
     Dosage: SEE IMAGE
     Route: 058
     Dates: start: 20060125, end: 20060301
  2. BYETTA [Suspect]
     Indication: DIABETES MELLITUS NON-INSULIN-DEPENDENT
     Dosage: SEE IMAGE
     Route: 058
     Dates: start: 20060301
  3. CORTICOSTEROID INJECTION [Suspect]
  4. ACTOS /USA/ [Concomitant]
  5. GLYBURIDE [Concomitant]
  6. GLIMEPIRIDE [Concomitant]

REACTIONS (8)
  - ANOREXIA [None]
  - BLOOD GLUCOSE INCREASED [None]
  - DIARRHOEA [None]
  - DRUG INEFFECTIVE [None]
  - FATIGUE [None]
  - NASOPHARYNGITIS [None]
  - VOMITING [None]
  - WEIGHT DECREASED [None]
